FAERS Safety Report 24319706 (Version 1)
Quarter: 2024Q3

REPORT INFORMATION
  Report Type: Report from Study
  Country: US (occurrence: US)
  Receive Date: 20240914
  Receipt Date: 20240914
  Transmission Date: 20241017
  Serious: Yes (Other)
  Sender: ABBVIE
  Company Number: US-ABBVIE-5176274

PATIENT
  Sex: Female

DRUGS (2)
  1. HUMIRA [Suspect]
     Active Substance: ADALIMUMAB
     Indication: Rheumatoid arthritis
     Route: 058
     Dates: start: 20191002, end: 202111
  2. RYBELSUS [Concomitant]
     Active Substance: SEMAGLUTIDE
     Indication: Product used for unknown indication

REACTIONS (6)
  - Eye haemorrhage [Unknown]
  - Chronic kidney disease [Unknown]
  - Gallbladder operation [Recovering/Resolving]
  - Decreased appetite [Unknown]
  - Limb asymmetry [Unknown]
  - Decreased activity [Unknown]

NARRATIVE: CASE EVENT DATE: 20200101
